FAERS Safety Report 16917298 (Version 1)
Quarter: 2019Q4

REPORT INFORMATION
  Report Type: Report from Study
  Country: US (occurrence: US)
  Receive Date: 20191015
  Receipt Date: 20191015
  Transmission Date: 20200122
  Serious: Yes (Other)
  Sender: FDA-Public Use
  Company Number: US-ROCHE-2433104

PATIENT
  Age: 32 Year
  Sex: Female
  Weight: 100.33 kg

DRUGS (1)
  1. OCREVUS [Suspect]
     Active Substance: OCRELIZUMAB
     Indication: RELAPSING MULTIPLE SCLEROSIS
     Dosage: ONGOING:YES
     Route: 042
     Dates: start: 20190609

REACTIONS (9)
  - Visual impairment [Unknown]
  - White blood cell count increased [Unknown]
  - Therapeutic response shortened [Unknown]
  - Memory impairment [Unknown]
  - Pneumonia [Unknown]
  - Dizziness [Unknown]
  - Dysphemia [Unknown]
  - Respiratory disorder [Unknown]
  - Feeling abnormal [Unknown]

NARRATIVE: CASE EVENT DATE: 201910
